FAERS Safety Report 6436718-9 (Version None)
Quarter: 2009Q4

REPORT INFORMATION
  Report Type: 
  Country: None (occurrence: None)
  Receive Date: 20091110
  Receipt Date: 20080409
  Transmission Date: 20100525
  Serious: No
  Sender: FDA-Public Use
  Company Number: AEUSA200800087

PATIENT
  Age: 57 Year
  Sex: Male

DRUGS (1)
  1. GAMUNEX [Suspect]
     Indication: IMMUNODEFICIENCY COMMON VARIABLE
     Dosage: 40 GM; IV
     Route: 042
     Dates: start: 20080327

REACTIONS (2)
  - INFUSION RELATED REACTION [None]
  - RASH [None]
